FAERS Safety Report 24352122 (Version 3)
Quarter: 2025Q2

REPORT INFORMATION
  Report Type: Spontaneous
  Country: GB (occurrence: GB)
  Receive Date: 20240923
  Receipt Date: 20250617
  Transmission Date: 20250716
  Serious: Yes (Life-Threatening, Other)
  Sender: ADVANZ PHARMA
  Company Number: GB-002147023-NVSC2024GB179605

PATIENT

DRUGS (18)
  1. SERTRALINE [Suspect]
     Active Substance: SERTRALINE HYDROCHLORIDE
     Indication: Product used for unknown indication
  2. PREDNISOLONE [Suspect]
     Active Substance: PREDNISOLONE
     Indication: Product used for unknown indication
  3. KISQALI [Suspect]
     Active Substance: RIBOCICLIB SUCCINATE
     Indication: Product used for unknown indication
  4. LETROZOLE [Suspect]
     Active Substance: LETROZOLE
     Indication: Product used for unknown indication
  5. AMITRIPTYLINE [Suspect]
     Active Substance: AMITRIPTYLINE
     Indication: Product used for unknown indication
  6. VITAMIN D NOS [Suspect]
     Active Substance: CHOLECALCIFEROL\ERGOCALCIFEROL
     Indication: Product used for unknown indication
  7. VITAMIN D NOS [Suspect]
     Active Substance: CHOLECALCIFEROL\ERGOCALCIFEROL
  8. VITAMIN D NOS [Suspect]
     Active Substance: CHOLECALCIFEROL\ERGOCALCIFEROL
  9. CALCIUM [Suspect]
     Active Substance: CALCIUM
     Indication: Product used for unknown indication
  10. CALCIUM [Suspect]
     Active Substance: CALCIUM
  11. GOSERELIN [Suspect]
     Active Substance: GOSERELIN
     Indication: Product used for unknown indication
     Dosage: 14.4 MG, QW (3.6 MG, 4W) (SUBDERMAL)
     Route: 058
  12. GOSERELIN [Suspect]
     Active Substance: GOSERELIN
     Route: 058
  13. GOSERELIN [Suspect]
     Active Substance: GOSERELIN
     Route: 058
  14. OMEPRAZOLE [Suspect]
     Active Substance: OMEPRAZOLE
     Indication: Product used for unknown indication
  15. DENOSUMAB [Suspect]
     Active Substance: DENOSUMAB
     Indication: Product used for unknown indication
     Dosage: UNK, WEEKLY (UNK, 4W)
     Route: 058
  16. DENOSUMAB [Suspect]
     Active Substance: DENOSUMAB
     Route: 058
  17. DENOSUMAB [Suspect]
     Active Substance: DENOSUMAB
     Route: 058
  18. DENOSUMAB [Suspect]
     Active Substance: DENOSUMAB
     Route: 058

REACTIONS (1)
  - Hepatotoxicity [Unknown]
